FAERS Safety Report 22308174 (Version 1)
Quarter: 2023Q2

REPORT INFORMATION
  Report Type: Spontaneous
  Country: AU (occurrence: AU)
  Receive Date: 20230511
  Receipt Date: 20230511
  Transmission Date: 20230721
  Serious: Yes (Hospitalization)
  Sender: FDA-Public Use
  Company Number: AU-GE HEALTHCARE-2023CSU003561

PATIENT
  Age: 35 Year
  Sex: Male

DRUGS (3)
  1. OMNIPAQUE [Suspect]
     Active Substance: IOHEXOL
     Indication: Computerised tomogram thorax
     Dosage: 75 ML, SINGLE
     Route: 042
     Dates: start: 20230508, end: 20230508
  2. OMNIPAQUE [Suspect]
     Active Substance: IOHEXOL
     Indication: Computerised tomogram abdomen
  3. OMNIPAQUE [Suspect]
     Active Substance: IOHEXOL
     Indication: Neoplasm malignant

REACTIONS (5)
  - Sneezing [Recovering/Resolving]
  - Respiratory tract oedema [Recovering/Resolving]
  - Swelling face [Recovering/Resolving]
  - Cough [Recovering/Resolving]
  - Pruritus [Recovering/Resolving]

NARRATIVE: CASE EVENT DATE: 20230508
